FAERS Safety Report 4760131-3 (Version None)
Quarter: 2005Q3

REPORT INFORMATION
  Report Type: 
  Country: None (occurrence: None)
  Receive Date: 20050902
  Receipt Date: 20050628
  Transmission Date: 20060218
  Serious: No
  Sender: FDA-Public Use
  Company Number: US-GLAXOSMITHKLINE-A0564477A

PATIENT
  Sex: Female

DRUGS (5)
  1. REQUIP [Suspect]
     Dosage: 2.5MG PER DAY
     Route: 048
  2. ATENOLOL [Concomitant]
  3. MAXZIDE [Concomitant]
  4. CALCIUM GLUCONATE [Concomitant]
  5. ASPIRIN [Concomitant]

REACTIONS (2)
  - NAUSEA [None]
  - SOMNOLENCE [None]
